FAERS Safety Report 4787595-3 (Version None)
Quarter: 2005Q3

REPORT INFORMATION
  Report Type: 
  Country: None (occurrence: None)
  Receive Date: 20050914
  Receipt Date: 20050201
  Transmission Date: 20060218
  Serious: Yes (Disabling)
  Sender: FDA-Public Use
  Company Number: 163-20785-05020049

PATIENT
  Age: 78 Year
  Sex: Male

DRUGS (2)
  1. THALOMID [Suspect]
     Indication: PROSTATE CANCER
     Dosage: 100 MG, DAILY, ORAL
     Route: 048
     Dates: start: 20050131, end: 20050201
  2. CHEMOTHERAPY [Concomitant]

REACTIONS (3)
  - DYSSTASIA [None]
  - HYPOAESTHESIA [None]
  - MYASTHENIC SYNDROME [None]
